FAERS Safety Report 15696376 (Version 2)
Quarter: 2019Q2

REPORT INFORMATION
  Report Type: Other
  Country: CA (occurrence: CA)
  Receive Date: 20181206
  Receipt Date: 20190606
  Transmission Date: 20190711
  Serious: Yes (Other)
  Sender: FDA-Public Use
  Company Number: CA-HLSUS-2018-CA-001655

PATIENT
  Age: 35 Year
  Sex: Male

DRUGS (1)
  1. CLOZAPINE. [Suspect]
     Active Substance: CLOZAPINE
     Indication: SCHIZOPHRENIA
     Dosage: 12.5 MG, 1 EVERY 1 DAY
     Route: 048

REACTIONS (9)
  - Malaise [Unknown]
  - Tachycardia [Unknown]
  - Dyspnoea [Unknown]
  - Diarrhoea [Unknown]
  - Eosinophil count increased [Unknown]
  - Vomiting [Unknown]
  - C-reactive protein increased [Unknown]
  - Food poisoning [Unknown]
  - Myocarditis [Unknown]
